FAERS Safety Report 6194078-5 (Version None)
Quarter: 2009Q2

REPORT INFORMATION
  Report Type: 
  Country: None (occurrence: None)
  Receive Date: 20090518
  Receipt Date: 20090514
  Transmission Date: 20091009
  Serious: Yes (Death, Life-Threatening, Other)
  Sender: FDA-Public Use
  Company Number: FR-ABBOTT-09P-056-0569600-00

PATIENT
  Sex: Female

DRUGS (1)
  1. VERCYTE [Suspect]
     Indication: ESSENTIAL THROMBOCYTHAEMIA
     Route: 048
     Dates: start: 20080923, end: 20090324

REACTIONS (6)
  - APLASIA [None]
  - FATIGUE [None]
  - INFECTION [None]
  - PSEUDOMONAL BACTERAEMIA [None]
  - SEPTIC SHOCK [None]
  - STAPHYLOCOCCAL BACTERAEMIA [None]
